FAERS Safety Report 23396277 (Version 1)
Quarter: 2024Q1

REPORT INFORMATION
  Report Type: Spontaneous
  Country: PK (occurrence: PK)
  Receive Date: 20240112
  Receipt Date: 20240112
  Transmission Date: 20240410
  Serious: Yes (Hospitalization, Other)
  Sender: FDA-Public Use
  Company Number: PK-MLMSERVICE-20231228-4746798-1

PATIENT
  Age: 4 Year
  Sex: Male

DRUGS (4)
  1. METHOTREXATE [Suspect]
     Active Substance: METHOTREXATE
     Indication: B precursor type acute leukaemia
     Dosage: DAY 1
     Dates: start: 2022, end: 2022
  2. VINCRISTINE [Suspect]
     Active Substance: VINCRISTINE
     Indication: B precursor type acute leukaemia
     Dosage: 0.885 MG ON DAY-2, DAY-7 DAY-16
     Route: 042
     Dates: start: 2022
  3. DEXAMETHASONE [Suspect]
     Active Substance: DEXAMETHASONE
     Indication: B precursor type acute leukaemia
     Dates: start: 2022
  4. PEGASPARGASE [Suspect]
     Active Substance: PEGASPARGASE
     Indication: B precursor type acute leukaemia
     Dosage: DAY 4, DAY-18
     Route: 030
     Dates: start: 2022

REACTIONS (6)
  - Osteomyelitis bacterial [Recovered/Resolved]
  - Mucosal inflammation [Recovered/Resolved]
  - Escherichia sepsis [Recovered/Resolved]
  - Fungaemia [Recovered/Resolved]
  - Febrile neutropenia [Recovered/Resolved]
  - Sinusitis fungal [Recovered/Resolved]

NARRATIVE: CASE EVENT DATE: 20220101
